FAERS Safety Report 22394380 (Version 1)
Quarter: 2023Q2

REPORT INFORMATION
  Report Type: Report from Study
  Country: DE (occurrence: DE)
  Receive Date: 20230601
  Receipt Date: 20230601
  Transmission Date: 20230721
  Serious: Yes (Other)
  Sender: FDA-Public Use
  Company Number: DE-TEVA-2023-DE-2890716

PATIENT
  Age: 64 Year
  Sex: Female

DRUGS (1)
  1. COPAXONE [Suspect]
     Active Substance: GLATIRAMER ACETATE
     Indication: Multiple sclerosis
     Dates: start: 20150529

REACTIONS (7)
  - Near death experience [Recovered/Resolved]
  - Quality of life decreased [Not Recovered/Not Resolved]
  - Immediate post-injection reaction [Recovered/Resolved]
  - Tremor [Recovered/Resolved]
  - Electric shock sensation [Recovered/Resolved]
  - Fear [Recovered/Resolved]
  - Fear of injection [Not Recovered/Not Resolved]

NARRATIVE: CASE EVENT DATE: 20230101
